FAERS Safety Report 13100085 (Version 1)
Quarter: 2017Q1

REPORT INFORMATION
  Report Type: Spontaneous
  Country: GB (occurrence: GB)
  Receive Date: 20170110
  Receipt Date: 20170110
  Transmission Date: 20170428
  Serious: Yes (Disabling, Other)
  Sender: FDA-Public Use
  Company Number: GB-BRISTOL-MYERS SQUIBB COMPANY-BMS-2016-111963

PATIENT
  Age: 54 Year
  Sex: Male
  Weight: 147 kg

DRUGS (5)
  1. ELIQUIS [Suspect]
     Active Substance: APIXABAN
     Indication: PRODUCT USED FOR UNKNOWN INDICATION
     Dosage: 2.5 MG SPLITTED TO TWO HALF PER A DAY
     Route: 065
  2. ELIQUIS [Suspect]
     Active Substance: APIXABAN
     Indication: PRODUCT USED FOR UNKNOWN INDICATION
     Dosage: 2.5 MG, UNK
     Route: 065
  3. XARELTO [Suspect]
     Active Substance: RIVAROXABAN
     Indication: PULMONARY EMBOLISM
     Dosage: 3 WEEKS OF 2 X 15 MG. THEN 20 MG DAILY
     Route: 048
     Dates: start: 20151214
  4. XARELTO [Suspect]
     Active Substance: RIVAROXABAN
     Indication: PRODUCT USED FOR UNKNOWN INDICATION
     Dosage: 3 WEEKS OF 2 X 15 MG. THEN 20 MG DAILY
     Route: 048
     Dates: start: 20160907
  5. IBUPROFEN. [Concomitant]
     Active Substance: IBUPROFEN
     Indication: PRODUCT USED FOR UNKNOWN INDICATION
     Route: 065

REACTIONS (22)
  - Arthralgia [Recovered/Resolved]
  - Pain [Unknown]
  - Myalgia [Not Recovered/Not Resolved]
  - Burning sensation [Recovering/Resolving]
  - Pruritus [Unknown]
  - Underdose [Unknown]
  - Back pain [Recovering/Resolving]
  - Muscular weakness [Not Recovered/Not Resolved]
  - Fatigue [Unknown]
  - Limb discomfort [Unknown]
  - Wheezing [Unknown]
  - Contraindicated product administered [Unknown]
  - Productive cough [Unknown]
  - Muscle tightness [Unknown]
  - Cough [Unknown]
  - Wrong technique in product usage process [Unknown]
  - Paraesthesia [Not Recovered/Not Resolved]
  - Gait disturbance [Not Recovered/Not Resolved]
  - Joint swelling [Recovering/Resolving]
  - Nerve injury [Unknown]
  - Chest pain [Unknown]
  - Skin texture abnormal [Unknown]

NARRATIVE: CASE EVENT DATE: 20151214
